FAERS Safety Report 6904813-3 (Version None)
Quarter: 2010Q3

REPORT INFORMATION
  Report Type: 
  Country: None (occurrence: None)
  Receive Date: 20100804
  Receipt Date: 20090713
  Transmission Date: 20110219
  Serious: Yes (Other)
  Sender: FDA-Public Use
  Company Number: US-PFIZER INC-2009222870

PATIENT
  Sex: Female
  Weight: 53.515 kg

DRUGS (7)
  1. LYRICA [Suspect]
     Indication: FIBROMYALGIA
     Dosage: FREQUENCY: DAILY;
     Dates: start: 20090401, end: 20090601
  2. ACETAMINOPHEN AND HYDROCODONE BITARTRATE [Interacting]
  3. LEXAPRO [Concomitant]
     Dosage: 20 MG, UNK
  4. CYMBALTA [Concomitant]
     Dosage: UNK
  5. LOTREL [Concomitant]
     Dosage: UNK
  6. SUDAFED 12 HOUR [Concomitant]
     Dosage: 2 EVERY MORNING
  7. SULFADINE [Concomitant]
     Dosage: UNK

REACTIONS (3)
  - DRUG INTERACTION [None]
  - VERTIGO [None]
  - VISUAL ACUITY REDUCED [None]
